FAERS Safety Report 6116027 (Version 2)
Quarter: 2018Q4

REPORT INFORMATION
  Report Type: Spontaneous
  Country: GB (occurrence: GB)
  Receive Date: 20060815
  Receipt Date: 20181009
  Transmission Date: 20190205
  Serious: Yes (Life-Threatening, Hospitalization, Other)
  Sender: FDA-Public Use
  Company Number: GXKR2006GB04618

PATIENT
  Age: 64 Year
  Sex: Female

DRUGS (12)
  1. VERAPAMIL [Suspect]
     Active Substance: VERAPAMIL HYDROCHLORIDE
     Dosage: LONG TERM USE
     Route: 048
  2. VERAPAMIL [Suspect]
     Active Substance: VERAPAMIL HYDROCHLORIDE
     Indication: ATRIAL FIBRILLATION
     Dosage: 80 MG, TID
     Route: 065
  3. SOTALOL. [Interacting]
     Active Substance: SOTALOL
     Dosage: UNK
     Route: 048
  4. WARFARIN [Concomitant]
     Active Substance: WARFARIN
     Indication: PRODUCT USED FOR UNKNOWN INDICATION
     Route: 065
  5. PERINDOPRIL [Concomitant]
     Active Substance: PERINDOPRIL
     Indication: ATRIAL FIBRILLATION
     Route: 065
  6. DIGOXIN. [Suspect]
     Active Substance: DIGOXIN
     Route: 065
  7. CO-AMILOFRUSE [Concomitant]
     Active Substance: AMILORIDE\FUROSEMIDE
     Dosage: UNK
     Route: 065
  8. WARFARIN [Concomitant]
     Active Substance: WARFARIN
     Dosage: UNK
     Route: 048
  9. CO-AMILOFRUSE [Concomitant]
     Active Substance: AMILORIDE\FUROSEMIDE
     Indication: ATRIAL FIBRILLATION
     Route: 065
  10. PERINDOPRIL [Concomitant]
     Active Substance: PERINDOPRIL
     Dosage: UNK
     Route: 048
  11. SOTALOL. [Interacting]
     Active Substance: SOTALOL
     Indication: ATRIAL FIBRILLATION
     Route: 065
  12. SOTALOL. [Interacting]
     Active Substance: SOTALOL
     Dosage: LONG TERM
     Route: 048

REACTIONS (26)
  - Abdominal pain [Recovered/Resolved]
  - Abdominal tenderness [Recovered/Resolved]
  - Pigmentation disorder [Recovered/Resolved]
  - Anuria [Recovered/Resolved]
  - Hepatic enzyme increased [Recovered/Resolved]
  - Atrial fibrillation [Recovered/Resolved]
  - Gastrointestinal sounds abnormal [Recovered/Resolved]
  - Coma scale abnormal [Recovered/Resolved]
  - Drug interaction [Recovered/Resolved]
  - Liver function test abnormal [Recovered/Resolved]
  - Abdominal discomfort [Recovered/Resolved]
  - Pulse absent [Recovered/Resolved]
  - Cardioactive drug level decreased [Recovered/Resolved]
  - Hypotension [Recovered/Resolved]
  - Renal failure [Recovered/Resolved]
  - Metabolic acidosis [Recovered/Resolved]
  - Bradycardia [Recovered/Resolved]
  - Depressed level of consciousness [Recovered/Resolved]
  - Cardiomegaly [Recovered/Resolved]
  - Toxicity to various agents [Recovered/Resolved]
  - Renal impairment [Recovered/Resolved]
  - Dyspnoea [Recovered/Resolved]
  - Livedo reticularis [Recovered/Resolved]
  - Cough [Recovered/Resolved]
  - Cardiac failure [Recovered/Resolved]
  - Liver function test increased [Recovered/Resolved]
